FAERS Safety Report 21987631 (Version 2)
Quarter: 2025Q4

REPORT INFORMATION
  Report Type: Spontaneous
  Country: US (occurrence: US)
  Receive Date: 20230214
  Receipt Date: 20251223
  Transmission Date: 20260118
  Serious: Yes (Other)
  Sender: PADAGIS
  Company Number: BR-PADAGIS-2023PAD00146

PATIENT

DRUGS (1)
  1. IMIQUIMOD [Suspect]
     Active Substance: IMIQUIMOD
     Indication: Molluscum contagiosum
     Dosage: UNK
     Route: 065

REACTIONS (1)
  - Pemphigus [Unknown]
